FAERS Safety Report 20985879 (Version 1)
Quarter: 2022Q2

REPORT INFORMATION
  Report Type: Spontaneous
  Country: IN (occurrence: IN)
  Receive Date: 20220621
  Receipt Date: 20220621
  Transmission Date: 20220721
  Serious: Yes (Death, Hospitalization)
  Sender: FDA-Public Use
  Company Number: IN-STRIDES ARCOLAB LIMITED-2022SP007367

PATIENT
  Age: 60 Year
  Sex: Male

DRUGS (1)
  1. METHOTREXATE [Suspect]
     Active Substance: METHOTREXATE
     Indication: Psoriasis
     Dosage: 15 MILLIGRAM, PER DAY, TABLET,FOR 5 DAYS, CUMULATIVE DOSE OF 75MG
     Route: 065

REACTIONS (11)
  - Accidental overdose [Fatal]
  - Incorrect dose administered [Fatal]
  - Overdose [Unknown]
  - Toxicity to various agents [Fatal]
  - Septic shock [Fatal]
  - Skin ulcer [Unknown]
  - Oral mucosa erosion [Unknown]
  - Skin ulcer haemorrhage [Unknown]
  - Haematology test abnormal [Unknown]
  - Hepatotoxicity [Unknown]
  - Renal injury [Unknown]
